FAERS Safety Report 6376118-3 (Version None)
Quarter: 2009Q3

REPORT INFORMATION
  Report Type: 
  Country: None (occurrence: None)
  Receive Date: 20090921
  Receipt Date: 20090910
  Transmission Date: 20100115
  Serious: Yes (Death)
  Sender: FDA-Public Use
  Company Number: 1-19913730

PATIENT

DRUGS (2)
  1. AMMONUL [Suspect]
     Indication: HYPERAMMONAEMIA
     Dosage: INTRAVENOUS
     Route: 042
     Dates: end: 20090901
  2. UNSPECIFIED HLH TREATMENT [Concomitant]

REACTIONS (1)
  - RENAL FAILURE [None]
